FAERS Safety Report 6240340-7 (Version None)
Quarter: 2009Q2

REPORT INFORMATION
  Report Type: 
  Country: None (occurrence: None)
  Receive Date: 20090623
  Receipt Date: 20080915
  Transmission Date: 20091009
  Serious: No
  Sender: FDA-Public Use
  Company Number: US-ASTRAZENECA-2008UW15778

PATIENT
  Age: 88 Year
  Sex: Female

DRUGS (3)
  1. PULMICORT FLEXHALER [Suspect]
     Indication: ASTHMA
     Dosage: 180 MCG 120 DOSES 4 PUFFS DAILY
     Route: 055
  2. PULMICORT FLEXHALER [Suspect]
     Dosage: 180 MCG 120 DOSES 2 PUFFS DAILY
     Route: 055
  3. SINGULAIR [Concomitant]

REACTIONS (2)
  - DRUG EFFECT DECREASED [None]
  - PRODUCT QUALITY ISSUE [None]
